FAERS Safety Report 6248727-3 (Version None)
Quarter: 2009Q2

REPORT INFORMATION
  Report Type: 
  Country: None (occurrence: None)
  Receive Date: 20090625
  Receipt Date: 20090625
  Transmission Date: 20091009
  Serious: Yes (Death)
  Sender: FDA-Public Use
  Company Number: None

PATIENT
  Sex: Female
  Weight: 81.8 kg

DRUGS (12)
  1. TEMOZOLOMIDE [Suspect]
     Indication: GLIOBLASTOMA MULTIFORME
     Dosage: 145MG/DAY QD PO
     Route: 048
     Dates: start: 20080929, end: 20081006
  2. TEMOZOLOMIDE [Suspect]
  3. TEMOZOLOMIDE [Suspect]
  4. ASPIRIN [Concomitant]
  5. COLACE [Concomitant]
  6. DECADRON [Concomitant]
  7. FLUCONAZOLE [Concomitant]
  8. KEPPRA [Concomitant]
  9. LIPITOR [Concomitant]
  10. MEROPROLOL [Concomitant]
  11. PRILOSEC [Concomitant]
  12. SEROQUEL [Concomitant]

REACTIONS (5)
  - ANOREXIA [None]
  - FATIGUE [None]
  - GLIOBLASTOMA MULTIFORME [None]
  - MALIGNANT NEOPLASM PROGRESSION [None]
  - NAUSEA [None]
